FAERS Safety Report 11164567 (Version 1)
Quarter: 2015Q2

REPORT INFORMATION
  Report Type: Spontaneous
  Country: BR (occurrence: BR)
  Receive Date: 20150604
  Receipt Date: 20150604
  Transmission Date: 20150821
  Serious: Yes (Other)
  Sender: FDA-Public Use
  Company Number: BR-BAXTER-2015BAX028556

PATIENT
  Age: 43 Year
  Sex: Male

DRUGS (2)
  1. HEMOFIL M [Suspect]
     Active Substance: ANTIHEMOPHILIC FACTOR HUMAN
     Indication: PROPHYLAXIS
     Route: 065
  2. ADVATE [Suspect]
     Active Substance: ANTIHEMOPHILIC FACTOR, HUMAN RECOMBINANT
     Indication: PROPHYLAXIS
     Route: 065

REACTIONS (5)
  - Haemorrhage [Unknown]
  - Arthralgia [Unknown]
  - Haemarthrosis [Unknown]
  - Deep vein thrombosis [Unknown]
  - Hyperaemia [Unknown]

NARRATIVE: CASE EVENT DATE: 201505
